FAERS Safety Report 8473759-4 (Version None)
Quarter: 2012Q2

REPORT INFORMATION
  Report Type: 
  Country: None (occurrence: None)
  Receive Date: 20120628
  Receipt Date: 20111110
  Transmission Date: 20120825
  Serious: Yes (Death)
  Sender: FDA-Public Use
  Company Number: US-MYLANLABS-2011S1022078

PATIENT
  Age: 45 Year
  Sex: Female

DRUGS (15)
  1. CLOZAPINE [Suspect]
     Indication: SCHIZOPHRENIA
     Route: 048
     Dates: end: 20110916
  2. PERIDEX /00133002/ [Concomitant]
  3. ARIXTRA [Concomitant]
  4. DOPAMINE HCL [Concomitant]
     Dosage: DRIP
  5. COMBIVENT [Concomitant]
  6. ABILIFY [Concomitant]
  7. PREVACID [Concomitant]
     Dosage: SOLUTABS
  8. MIDAZOLAM [Concomitant]
     Dosage: DRIP
  9. NOVOLOG [Concomitant]
  10. PREDNISONE TAB [Concomitant]
  11. REVATIO [Concomitant]
  12. XENADERM [Concomitant]
  13. SYNTHROID [Concomitant]
  14. CLOZAPINE [Suspect]
     Indication: BIPOLAR DISORDER
     Route: 048
     Dates: end: 20110916
  15. DEPAKENE [Concomitant]

REACTIONS (5)
  - RESPIRATORY DEPRESSION [None]
  - CARDIAC DISORDER [None]
  - PULMONARY HYPERTENSION [None]
  - RESPIRATORY FAILURE [None]
  - LETHARGY [None]
